FAERS Safety Report 13235511 (Version 1)
Quarter: 2017Q1

REPORT INFORMATION
  Report Type: Spontaneous
  Country: US (occurrence: US)
  Receive Date: 20170215
  Receipt Date: 20170215
  Transmission Date: 20170428
  Serious: Yes (Hospitalization, Other)
  Sender: FDA-Public Use
  Company Number: US-PFIZER INC-2017065473

PATIENT
  Age: 48 Year
  Sex: Female
  Weight: 96 kg

DRUGS (3)
  1. LYRICA [Suspect]
     Active Substance: PREGABALIN
     Indication: SPINAL CORD INJURY
  2. NORTRIPTYLINE [Suspect]
     Active Substance: NORTRIPTYLINE
  3. LYRICA [Suspect]
     Active Substance: PREGABALIN
     Indication: NEURALGIA
     Dosage: 150 MG, 3X/DAY
     Route: 048

REACTIONS (13)
  - Swelling face [Recovered/Resolved]
  - Eye disorder [Unknown]
  - Serotonin syndrome [Unknown]
  - Activities of daily living impaired [Unknown]
  - Hypoaesthesia [Not Recovered/Not Resolved]
  - Impaired driving ability [Unknown]
  - Confusional state [Unknown]
  - Occipital neuralgia [Unknown]
  - Chest discomfort [Not Recovered/Not Resolved]
  - Pain [Unknown]
  - Chest pain [Not Recovered/Not Resolved]
  - Abdominal pain [Not Recovered/Not Resolved]
  - Reading disorder [Unknown]
